FAERS Safety Report 4953289-4 (Version None)
Quarter: 2006Q1

REPORT INFORMATION
  Report Type: 
  Country: None (occurrence: None)
  Receive Date: 20060324
  Receipt Date: 20060315
  Transmission Date: 20060701
  Serious: Yes (Other)
  Sender: FDA-Public Use
  Company Number: US-JNJFOC-20060304294

PATIENT
  Sex: Female

DRUGS (14)
  1. TOPAMAX [Suspect]
     Indication: MIGRAINE PROPHYLAXIS
     Route: 048
  2. AMITRIPTYLINE HCL [Concomitant]
  3. PLAQUENIL [Concomitant]
  4. EVISTA [Concomitant]
  5. POTASSIUM CHLORIDE [Concomitant]
  6. PROTONIX [Concomitant]
  7. DEMADEX [Concomitant]
  8. ALLEGRA [Concomitant]
  9. SUDAFED 12 HOUR [Concomitant]
  10. ASPIRIN [Concomitant]
  11. RANITIDINE [Concomitant]
  12. LODINE [Concomitant]
  13. RELPAX [Concomitant]
  14. LEVBID [Concomitant]

REACTIONS (1)
  - LOSS OF CONSCIOUSNESS [None]
